FAERS Safety Report 11703279 (Version 1)
Quarter: 2015Q4

REPORT INFORMATION
  Report Type: Spontaneous
  Country: IT (occurrence: IT)
  Receive Date: 20151105
  Receipt Date: 20151105
  Transmission Date: 20160304
  Serious: Yes (Death)
  Sender: FDA-Public Use
  Company Number: PHHY2015IT141138

PATIENT
  Age: 57 Year
  Sex: Female

DRUGS (1)
  1. LINEZOLID. [Suspect]
     Active Substance: LINEZOLID
     Indication: STAPHYLOCOCCAL INFECTION
     Dosage: 600 MG, BID
     Route: 065
     Dates: start: 201501

REACTIONS (3)
  - Pancytopenia [Fatal]
  - Lactic acidosis [Fatal]
  - Toxicity to various agents [Fatal]
